FAERS Safety Report 17105252 (Version 4)
Quarter: 2022Q1

REPORT INFORMATION
  Report Type: Spontaneous
  Country: GB (occurrence: GB)
  Receive Date: 20191203
  Receipt Date: 20220322
  Transmission Date: 20220424
  Serious: Yes (Other)
  Sender: FDA-Public Use
  Company Number: None

PATIENT
  Age: 69 Year

DRUGS (13)
  1. METFORMIN [Suspect]
     Active Substance: METFORMIN HYDROCHLORIDE
     Indication: Diabetes mellitus
     Dosage: 1 G STARTED MANY YEARS AGO,NON-AZ DRUG (AUTHORIZATION/APPLICATION NUMBER PL 00289/0340)
     Route: 048
  2. METFORMIN [Suspect]
     Active Substance: METFORMIN HYDROCHLORIDE
     Dosage: 500 MG , DOSE: 1 G
     Route: 048
  3. METFORMIN [Suspect]
     Active Substance: METFORMIN HYDROCHLORIDE
     Route: 065
  4. GLICLAZIDE [Suspect]
     Active Substance: GLICLAZIDE
     Indication: Diabetes mellitus
     Dosage: 80 MG STARTED MANY YEARS AGO
     Route: 048
  5. GLICLAZIDE [Suspect]
     Active Substance: GLICLAZIDE
     Dosage: 80 MILLIGRAM
     Route: 048
  6. GLICLAZIDE [Suspect]
     Active Substance: GLICLAZIDE
     Route: 065
  7. ATORVASTATIN [Suspect]
     Active Substance: ATORVASTATIN
     Indication: Blood cholesterol increased
     Dosage: 20 MG STARTED MANY YEARS AGO
     Route: 048
  8. ATORVASTATIN [Suspect]
     Active Substance: ATORVASTATIN
     Dosage: 20 MILLIGRAM,STARTED MANY YEARS AGO,UNIT DOSE :20MICROGRAM
     Route: 048
  9. ATORVASTATIN [Suspect]
     Active Substance: ATORVASTATIN
     Route: 065
  10. BYETTA [Suspect]
     Active Substance: EXENATIDE
     Indication: Product used for unknown indication
     Dosage: 20 MICROGRAM DAILY; 10 MICROGRAM, TWO TIMES A DAY
     Route: 058
  11. BYETTA [Suspect]
     Active Substance: EXENATIDE
     Dosage: 10 MICROGRAM DAILY;
     Route: 065
  12. BYETTA [Suspect]
     Active Substance: EXENATIDE
     Route: 065
  13. SILDENAFIL [Concomitant]
     Active Substance: SILDENAFIL
     Indication: Product used for unknown indication
     Route: 065

REACTIONS (2)
  - Erythema [Not Recovered/Not Resolved]
  - Skin reaction [Not Recovered/Not Resolved]

NARRATIVE: CASE EVENT DATE: 20110101
